FAERS Safety Report 4706743-4 (Version None)
Quarter: 2005Q2

REPORT INFORMATION
  Report Type: 
  Country: None (occurrence: None)
  Receive Date: 20050629
  Receipt Date: 20050405
  Transmission Date: 20051028
  Serious: No
  Sender: FDA-Public Use
  Company Number: 05P-147-0296300-00

PATIENT
  Age: 59 Year
  Sex: Female
  Weight: 77.1115 kg

DRUGS (8)
  1. HUMIRA [Suspect]
     Indication: RHEUMATOID ARTHRITIS
     Dosage: 40 MG, 1 IN 2 WK, SUBCUTANEOUS
     Route: 058
     Dates: start: 20030901
  2. VENLAFAXINE HCL [Concomitant]
  3. TRAMADOL HCL [Concomitant]
  4. OMEPRAZOLE [Concomitant]
  5. SPIRONOLACTONE [Concomitant]
  6. IMITREX [Concomitant]
  7. CELECOXIB [Concomitant]
  8. ... [Concomitant]

REACTIONS (4)
  - FATIGUE [None]
  - HEADACHE [None]
  - OEDEMA PERIPHERAL [None]
  - RESTLESS LEGS SYNDROME [None]
